FAERS Safety Report 14162633 (Version 2)
Quarter: 2018Q1

REPORT INFORMATION
  Report Type: Report from Study
  Country: FR (occurrence: FR)
  Receive Date: 20171106
  Receipt Date: 20180312
  Transmission Date: 20180508
  Serious: Yes (Other)
  Sender: FDA-Public Use
  Company Number: FR-ROCHE-2020728

PATIENT
  Age: 46 Year
  Sex: Male

DRUGS (1)
  1. RITUXIMAB. [Suspect]
     Active Substance: RITUXIMAB
     Indication: ANTISYNTHETASE SYNDROME
     Dosage: INDUCTION DOSE ON DAY 0 AND 15
     Route: 042

REACTIONS (4)
  - Intentional product use issue [Unknown]
  - Off label use [Unknown]
  - Kaposi^s sarcoma [Not Recovered/Not Resolved]
  - Human herpesvirus 8 infection [Unknown]
